FAERS Safety Report 21134385 (Version 2)
Quarter: 2022Q3

REPORT INFORMATION
  Report Type: Report from Study
  Country: US (occurrence: US)
  Receive Date: 20220726
  Receipt Date: 20220825
  Transmission Date: 20221027
  Serious: Yes (Hospitalization, Other)
  Sender: FDA-Public Use
  Company Number: US-BRISTOL-MYERS SQUIBB COMPANY-2022-075329

PATIENT
  Age: 59 Year
  Sex: Male
  Weight: 97.5 kg

DRUGS (1)
  1. REVLIMID [Suspect]
     Active Substance: LENALIDOMIDE
     Indication: Diffuse large B-cell lymphoma
     Dosage: DAILY 1-21, EVERY 28 DAYS
     Route: 048
     Dates: start: 20200714

REACTIONS (4)
  - Cardiac disorder [Unknown]
  - Subclavian vein thrombosis [Unknown]
  - Intentional product use issue [Unknown]
  - Squamous cell carcinoma [Unknown]

NARRATIVE: CASE EVENT DATE: 20220627
